FAERS Safety Report 4566757-4 (Version None)
Quarter: 2005Q1

REPORT INFORMATION
  Report Type: 
  Country: None (occurrence: None)
  Receive Date: 20050201
  Receipt Date: 20011002
  Transmission Date: 20050727
  Serious: Yes (Other)
  Sender: FDA-Public Use
  Company Number: US-BRISTOL-MYERS SQUIBB COMPANY-11058096

PATIENT
  Age: 4 Decade
  Sex: Female

DRUGS (6)
  1. STADOL [Suspect]
     Route: 045
  2. CARISOPRODOL [Concomitant]
  3. FENOPROFEN CALCIUM [Concomitant]
  4. NEURONTIN [Concomitant]
  5. ACETAMINOPHEN AND CODEINE PHOSPHATE [Concomitant]
  6. NAPROXEN [Concomitant]

REACTIONS (1)
  - DEPENDENCE [None]
